FAERS Safety Report 12283647 (Version 1)
Quarter: 2016Q2

REPORT INFORMATION
  Report Type: Spontaneous
  Country: CN (occurrence: CN)
  Receive Date: 20160419
  Receipt Date: 20160419
  Transmission Date: 20160815
  Serious: Yes (Other)
  Sender: FDA-Public Use
  Company Number: CN-PFIZER INC-2016220843

PATIENT
  Age: 42 Year
  Sex: Female
  Weight: 77 kg

DRUGS (1)
  1. SOLU-MEDROL [Suspect]
     Active Substance: METHYLPREDNISOLONE SODIUM SUCCINATE
     Indication: HENOCH-SCHONLEIN PURPURA
     Dosage: 0.5 G, 1X/DAY
     Route: 041
     Dates: start: 20150915, end: 20150917

REACTIONS (2)
  - Platelet count increased [Unknown]
  - White blood cell count increased [Unknown]

NARRATIVE: CASE EVENT DATE: 20150918
